FAERS Safety Report 14147416 (Version 1)
Quarter: 2017Q4

REPORT INFORMATION
  Report Type: Spontaneous
  Country: US (occurrence: US)
  Receive Date: 20171031
  Receipt Date: 20171031
  Transmission Date: 20180321
  Serious: No
  Sender: FDA-Public Use
  Company Number: US-MYLANLABS-2017M1061967

PATIENT
  Sex: Female

DRUGS (2)
  1. DICYCLOMINE HYDROCHLORIDE TABLETS, USP [Suspect]
     Active Substance: DICYCLOMINE HYDROCHLORIDE
     Dosage: 3 DF, UNK
     Dates: start: 2017
  2. DICYCLOMINE HYDROCHLORIDE TABLETS, USP [Suspect]
     Active Substance: DICYCLOMINE HYDROCHLORIDE
     Indication: GASTROINTESTINAL DISORDER
     Dosage: UNK
     Dates: start: 20170921

REACTIONS (2)
  - Condition aggravated [Unknown]
  - Gastrointestinal disorder [Unknown]

NARRATIVE: CASE EVENT DATE: 2017
